FAERS Safety Report 6937535-3 (Version None)
Quarter: 2010Q3

REPORT INFORMATION
  Report Type: 
  Country: None (occurrence: None)
  Receive Date: 20100823
  Receipt Date: 20100823
  Transmission Date: 20110219
  Serious: Yes (Life-Threatening, Other)
  Sender: FDA-Public Use
  Company Number: None

PATIENT
  Age: 24 Year
  Sex: Male
  Weight: 79.3795 kg

DRUGS (2)
  1. BUPROPION HCL [Suspect]
     Indication: MAJOR DEPRESSION
     Dosage: 150MG 1/DAY PO
     Route: 048
     Dates: start: 20100801, end: 20100815
  2. BUPROPION HCL [Suspect]

REACTIONS (1)
  - PRODUCT SUBSTITUTION ISSUE [None]
